FAERS Safety Report 5587759-5 (Version None)
Quarter: 2007Q4

REPORT INFORMATION
  Report Type: 
  Country: None (occurrence: None)
  Receive Date: 20071207
  Receipt Date: 20070413
  Transmission Date: 20080405
  Serious: Yes (Other)
  Sender: FDA-Public Use
  Company Number: 36034

PATIENT
  Age: 72 Year
  Sex: Female
  Weight: 87.5442 kg

DRUGS (1)
  1. AMIODARONE HCL [Suspect]
     Indication: CATHETER PLACEMENT
     Dosage: 450MG/250 D5W IV
     Route: 042
     Dates: start: 20070410

REACTIONS (1)
  - EXTRAVASATION [None]
